FAERS Safety Report 24089609 (Version 2)
Quarter: 2024Q3

REPORT INFORMATION
  Report Type: Spontaneous
  Country: ES (occurrence: ES)
  Receive Date: 20240715
  Receipt Date: 20240802
  Transmission Date: 20241016
  Serious: Yes (Hospitalization)
  Sender: TEVA
  Company Number: ES-TEVA-VS-3217464

PATIENT
  Age: 65 Year
  Sex: Male

DRUGS (2)
  1. OLMESARTAN [Suspect]
     Active Substance: OLMESARTAN
     Indication: Hypertension
     Dosage: OLMESARTAN-MEDOXOMIL
     Route: 065
  2. DOXYCYCLINE [Concomitant]
     Active Substance: DOXYCYCLINE\DOXYCYCLINE HYCLATE
     Indication: Hidradenitis
     Route: 065

REACTIONS (1)
  - Gastrointestinal disorder [Recovered/Resolved]
